FAERS Safety Report 5216712-6 (Version None)
Quarter: 2007Q1

REPORT INFORMATION
  Report Type: 
  Country: None (occurrence: None)
  Receive Date: 20061130
  Receipt Date: 20060505
  Transmission Date: 20070707
  Serious: Yes (Other)
  Sender: FDA-Public Use
  Company Number: US200605001338

PATIENT
  Age: 38 Year
  Sex: Female
  Weight: 100.7 kg

DRUGS (3)
  1. ZYPREXA ZYDIS [Suspect]
     Indication: WEIGHT CONTROL
     Dosage: 15 MG
  2. OLANZAPINE [Suspect]
     Dates: start: 19980101
  3. CYMBALTA [Concomitant]

REACTIONS (5)
  - BLOOD CHOLESTEROL INCREASED [None]
  - BLOOD TRIGLYCERIDES INCREASED [None]
  - CONVULSION [None]
  - WEIGHT INCREASED [None]
  - WEIGHT LOSS POOR [None]
